FAERS Safety Report 6157306-8 (Version None)
Quarter: 2009Q2

REPORT INFORMATION
  Report Type: 
  Country: None (occurrence: None)
  Receive Date: 20090416
  Receipt Date: 20090409
  Transmission Date: 20091009
  Serious: Yes (Hospitalization)
  Sender: FDA-Public Use
  Company Number: US-BIOGENIDEC-2009BI011369

PATIENT
  Age: 1 Day
  Sex: Female

DRUGS (3)
  1. AVONEX [Suspect]
     Indication: DRUG EXPOSURE DURING PREGNANCY
     Route: 030
     Dates: start: 19970101, end: 19970101
  2. AVONEX [Suspect]
     Route: 030
     Dates: start: 19970101, end: 19970101
  3. AVONEX [Suspect]
     Route: 064
     Dates: start: 19970101, end: 20030101

REACTIONS (6)
  - APNOEA [None]
  - ATRIAL SEPTAL DEFECT [None]
  - CARDIAC MURMUR [None]
  - CEREBRAL PALSY [None]
  - HAEMATOCRIT DECREASED [None]
  - PULMONARY VALVE STENOSIS [None]
